FAERS Safety Report 14621269 (Version 1)
Quarter: 2018Q1

REPORT INFORMATION
  Report Type: Spontaneous
  Country: IT (occurrence: IT)
  Receive Date: 20180310
  Receipt Date: 20180310
  Transmission Date: 20180509
  Serious: Yes (Hospitalization)
  Sender: FDA-Public Use
  Company Number: IT-AUROBINDO-AUR-APL-2018-013438

PATIENT

DRUGS (6)
  1. AMITRIPTYLINE [Suspect]
     Active Substance: AMITRIPTYLINE
     Indication: NEURALGIA
     Dosage: UNK
     Dates: start: 20170601, end: 20171130
  2. RIVOTRIL [Suspect]
     Active Substance: CLONAZEPAM
     Indication: PRODUCT USED FOR UNKNOWN INDICATION
     Dosage: UNK
     Dates: start: 20170601, end: 20171130
  3. DULOXETINE. [Suspect]
     Active Substance: DULOXETINE
     Indication: PRODUCT USED FOR UNKNOWN INDICATION
     Dosage: 60 MILLIGRAM, DAILY
     Dates: start: 20170601, end: 20171130
  4. GABAPENTIN. [Suspect]
     Active Substance: GABAPENTIN
     Indication: NEURALGIA
     Dosage: UNK
     Dates: start: 20170601, end: 20171130
  5. CANNABIS [Suspect]
     Active Substance: CANNABIS SATIVA SUBSP. INDICA TOP
     Indication: NEURALGIA
  6. DUROGESIC [Suspect]
     Active Substance: FENTANYL
     Indication: NEURALGIA
     Dosage: UNK
     Dates: start: 20170601, end: 20171130

REACTIONS (7)
  - Syncope [Recovering/Resolving]
  - Tremor [Recovering/Resolving]
  - Sinus tachycardia [Recovering/Resolving]
  - Drug interaction [Recovering/Resolving]
  - Memory impairment [Recovering/Resolving]
  - Urinary retention [Recovering/Resolving]
  - Confusional state [Recovering/Resolving]

NARRATIVE: CASE EVENT DATE: 20170901
